FAERS Safety Report 7498992-X (Version None)
Quarter: 2011Q2

REPORT INFORMATION
  Report Type: 
  Country: None (occurrence: None)
  Receive Date: 20110524
  Receipt Date: 20110506
  Transmission Date: 20111010
  Serious: Yes (Other)
  Sender: FDA-Public Use
  Company Number: US-BAYER-201036749NA

PATIENT
  Age: 29 Year
  Sex: Female
  Weight: 73.923 kg

DRUGS (10)
  1. YASMIN [Suspect]
     Indication: PRODUCT USED FOR UNKNOWN INDICATION
     Dosage: UNK
     Route: 048
     Dates: start: 20020101, end: 20090601
  2. HYDROXYZINE HCL [Concomitant]
     Dosage: 25 MG, QID
     Route: 048
  3. OMEPRAZOLE [Concomitant]
     Indication: ABDOMINAL PAIN
     Dosage: 20 MG, BID
     Route: 048
  4. FLUCONAZOLE [Concomitant]
     Dosage: 150 MG, QD
     Route: 048
  5. FAMOTIDINE [Concomitant]
     Dosage: 20 MG, BID
     Route: 048
  6. CHLORDIAZEPOXIDE W/CLIDINIUM BROMIDE [Concomitant]
     Indication: ABDOMINAL PAIN
     Dosage: 2.5 MG, TID
     Route: 048
  7. HYDROCODONE [HYDROCODONE] [Concomitant]
     Dosage: 4 %, TID
     Route: 061
  8. PHENOBARBITAL AND BELLADONNA [ATROP SULF,HYOSCINE HBR,HYOSCYAM SULF,PH [Concomitant]
     Indication: ABDOMINAL PAIN
     Dosage: 16.2 MG, QID
     Route: 048
  9. PREDNISONE [Concomitant]
     Dosage: 20 MG, BID
     Route: 048
  10. ACTICIN [PERMETHRIN] [Concomitant]
     Dosage: 5 %, UNK
     Route: 061

REACTIONS (2)
  - GALLBLADDER INJURY [None]
  - CHOLECYSTITIS CHRONIC [None]
